FAERS Safety Report 12443164 (Version 2)
Quarter: 2016Q3

REPORT INFORMATION
  Report Type: Spontaneous
  Country: IT (occurrence: IT)
  Receive Date: 20160607
  Receipt Date: 20160722
  Transmission Date: 20161109
  Serious: Yes (Death)
  Sender: FDA-Public Use
  Company Number: IT-PFIZER INC-2016284453

PATIENT
  Age: 76 Year

DRUGS (12)
  1. TAPAZOLE [Concomitant]
     Active Substance: METHIMAZOLE
     Dosage: 5 MG, DAILY
  2. TACHIDOL [Concomitant]
     Active Substance: ACETAMINOPHEN\CODEINE PHOSPHATE
     Dosage: 1 DF, 2-3/DAY
  3. COUMADIN [Concomitant]
     Active Substance: WARFARIN SODIUM
     Dosage: UNK, AS NEEDED
  4. LANSOPRAZOLE. [Concomitant]
     Active Substance: LANSOPRAZOLE
     Dosage: 30 MG, DAILY
  5. ARCOXIA [Concomitant]
     Active Substance: ETORICOXIB
     Dosage: 90 MG, UNK
  6. ZYLORIC [Concomitant]
     Active Substance: ALLOPURINOL
     Dosage: 300 MG, DAILY
  7. LASIX [Concomitant]
     Active Substance: FUROSEMIDE
     Dosage: 25 MG, 2X/DAY
  8. TORVAST [Concomitant]
     Active Substance: ATORVASTATIN
     Dosage: 10 MG, DAILY
  9. CARDIOASPIRINA [Concomitant]
     Active Substance: ASPIRIN
     Dosage: 100 MG, UNK
  10. MINITRANS [Concomitant]
     Dosage: 1 DF, DAILY
  11. INLYTA [Suspect]
     Active Substance: AXITINIB
     Indication: METASTATIC RENAL CELL CARCINOMA
     Dosage: 5 MG, 2X/DAY
     Dates: start: 201406, end: 201604
  12. CACIT D3 [Concomitant]
     Active Substance: CALCIUM\CHOLECALCIFEROL
     Dosage: 1 DF, UNK

REACTIONS (1)
  - Acute myocardial infarction [Fatal]

NARRATIVE: CASE EVENT DATE: 20160410
